FAERS Safety Report 20214120 (Version 1)
Quarter: 2021Q4

REPORT INFORMATION
  Report Type: Spontaneous
  Country: US (occurrence: None)
  Receive Date: 20211221
  Receipt Date: 20211221
  Transmission Date: 20220303
  Serious: No
  Sender: FDA-Public Use
  Company Number: None

PATIENT
  Age: 71 Year
  Sex: Female
  Weight: 66.10 kg

DRUGS (13)
  1. CAPECITABINE [Suspect]
     Active Substance: CAPECITABINE
     Indication: Breast cancer
     Dosage: FREQUENCY : DAILY;?
     Route: 048
     Dates: start: 20211124
  2. Anastrozole Oral Tablet 1 MG [Concomitant]
  3. Anastrozole Oral Tablet 1 MG [Concomitant]
  4. Bayer Aspirin Oral Tablet 325 MG [Concomitant]
  5. Calcium Carbonate-Vitamin D3 Oral T [Concomitant]
  6. Entresto Oral Tablet 24-26 MG [Concomitant]
  7. Furosemide Oral Tablet 40 MG [Concomitant]
  8. Lasix Oral Tablet 20 MG [Concomitant]
  9. Lyrica Oral Capsule 100 MG [Concomitant]
  10. VITAMINS [Concomitant]
     Active Substance: VITAMINS
  11. Potassium Chloride ER Oral Tablet E [Concomitant]
  12. Pregabalin Oral Capsule 25 MG [Concomitant]
  13. XARELTO [Concomitant]
     Active Substance: RIVAROXABAN

REACTIONS (3)
  - Stomatitis [None]
  - Dysphagia [None]
  - Feeding disorder [None]

NARRATIVE: CASE EVENT DATE: 20211221
